FAERS Safety Report 8766984 (Version 1)
Quarter: 2012Q4

REPORT INFORMATION
  Report Type: 
  Country: US (occurrence: US)
  Receive Date: 20120904
  Receipt Date: 20120904
  Transmission Date: 20130627
  Serious: No
  Sender: FDA-Public Use
  Company Number: US-JNJFOC-20120811907

PATIENT
  Age: 60 Year
  Sex: Female

DRUGS (8)
  1. INVEGA SUSTENNA [Suspect]
     Indication: DELUSIONAL DISORDER, UNSPECIFIED TYPE
     Route: 030
  2. FUROSEMIDE [Concomitant]
  3. LISINOPRIL [Concomitant]
  4. CITALOPRAM [Concomitant]
  5. MS CONTIN [Concomitant]
  6. PERCOCET [Concomitant]
  7. ADDERALL [Concomitant]
  8. OMEPRAZOLE [Concomitant]

REACTIONS (3)
  - Application site nodule [Not Recovered/Not Resolved]
  - Application site erythema [Not Recovered/Not Resolved]
  - Off label use [Not Recovered/Not Resolved]
